FAERS Safety Report 8888573 (Version 1)
Quarter: 2012Q4

REPORT INFORMATION
  Report Type: 
  Country: IE (occurrence: IE)
  Receive Date: 20121106
  Receipt Date: 20121106
  Transmission Date: 20130627
  Serious: Yes (Hospitalization, Other)
  Sender: FDA-Public Use
  Company Number: IE-COVIDIEN/TYCO HEALTHCARE/MALLINCKRODT-T201203827

PATIENT
  Age: 1 Day

DRUGS (3)
  1. METHADOSE [Suspect]
     Dosage: 69.3 mg (mean dose at delivery), UNK
  2. METHADOSE [Suspect]
     Dosage: UNK
  3. UNSPECIFIED INGREDIENT [Suspect]
     Dosage: UNK

REACTIONS (3)
  - Foetal exposure during pregnancy [Unknown]
  - Premature baby [Unknown]
  - Maternal drugs affecting foetus [None]
